FAERS Safety Report 8185274-6 (Version None)
Quarter: 2012Q1

REPORT INFORMATION
  Report Type: 
  Country: None (occurrence: None)
  Receive Date: 20120305
  Receipt Date: 20120227
  Transmission Date: 20120608
  Serious: Yes (Other)
  Sender: FDA-Public Use
  Company Number: PHEH2012US004713

PATIENT
  Sex: Female

DRUGS (4)
  1. TEGRETOL [Suspect]
     Dosage: 200 MG, TID
  2. CRESTOR [Concomitant]
  3. NEURONTIN [Concomitant]
  4. LOSARTAN POTASSIUM [Concomitant]

REACTIONS (3)
  - FALL [None]
  - MUSCULAR WEAKNESS [None]
  - MOVEMENT DISORDER [None]
